FAERS Safety Report 9803419 (Version 1)
Quarter: 2014Q1

REPORT INFORMATION
  Report Type: Spontaneous
  Country: US (occurrence: US)
  Receive Date: 20140108
  Receipt Date: 20140108
  Transmission Date: 20141002
  Serious: Yes (Hospitalization)
  Sender: FDA-Public Use
  Company Number: US-NOVOPROD-397084

PATIENT
  Age: 62 Year
  Sex: Female
  Weight: 80.73 kg

DRUGS (2)
  1. NOVOLOG FLEXPEN [Suspect]
     Indication: TYPE 2 DIABETES MELLITUS
     Dosage: 20 UNITS, QD
     Route: 058
     Dates: start: 201309, end: 20130930
  2. EPIPEN [Concomitant]
     Indication: HYPERSENSITIVITY
     Dosage: UNK, PRN
     Route: 030

REACTIONS (2)
  - Tachycardia [Recovered/Resolved]
  - Rash pruritic [Recovered/Resolved]
